FAERS Safety Report 12428046 (Version 2)
Quarter: 2016Q2

REPORT INFORMATION
  Report Type: Report from Study
  Country: DE (occurrence: DE)
  Receive Date: 20160602
  Receipt Date: 20160622
  Transmission Date: 20160815
  Serious: Yes (Hospitalization, Other)
  Sender: FDA-Public Use
  Company Number: DE-AMGEN-DEUCT2016069155

PATIENT
  Age: 76 Year
  Sex: Male

DRUGS (3)
  1. METOPROLOL. [Concomitant]
     Active Substance: METOPROLOL
     Indication: HYPERTENSION
     Dosage: UNK
     Dates: start: 2007
  2. LEVEMIR [Concomitant]
     Active Substance: INSULIN DETEMIR
     Indication: TYPE 2 DIABETES MELLITUS
     Dosage: UNK
     Dates: start: 2005
  3. ROMIPLOSTIM [Suspect]
     Active Substance: ROMIPLOSTIM
     Indication: MYELODYSPLASTIC SYNDROME
     Dosage: 500 MUG, UNK
     Route: 058
     Dates: start: 20151208

REACTIONS (1)
  - Ischaemic stroke [Recovered/Resolved with Sequelae]

NARRATIVE: CASE EVENT DATE: 20160510
